FAERS Safety Report 5473610-0 (Version None)
Quarter: 2007Q4

REPORT INFORMATION
  Report Type: 
  Country: None (occurrence: None)
  Receive Date: 20071001
  Receipt Date: 20040402
  Transmission Date: 20080405
  Serious: Yes (Other)
  Sender: FDA-Public Use
  Company Number: US-PFIZER INC-2007058950

PATIENT
  Sex: Female

DRUGS (1)
  1. DOSTINEX [Suspect]

REACTIONS (3)
  - ABORTION SPONTANEOUS [None]
  - BENIGN UTERINE NEOPLASM [None]
  - UTERINE SYNECHIAE [None]
